FAERS Safety Report 6400216-9 (Version None)
Quarter: 2009Q4

REPORT INFORMATION
  Report Type: 
  Country: None (occurrence: None)
  Receive Date: 20091014
  Receipt Date: 20091005
  Transmission Date: 20100525
  Serious: Yes (Other)
  Sender: FDA-Public Use
  Company Number: SE-JNJFOC-20091004387

PATIENT
  Sex: Male
  Weight: 1.79 kg

DRUGS (6)
  1. KETOCONAZOLE [Suspect]
     Indication: DRUG EXPOSURE DURING PREGNANCY
  2. LABETALOL HCL [Suspect]
     Indication: DRUG EXPOSURE DURING PREGNANCY
  3. LONG ACTING INSULIN [Suspect]
     Indication: DRUG EXPOSURE DURING PREGNANCY
  4. ISRADIPINE [Suspect]
     Indication: DRUG EXPOSURE DURING PREGNANCY
  5. SPIRONOLACTONE [Suspect]
     Indication: DRUG EXPOSURE DURING PREGNANCY
  6. HYDROCORTISONE [Suspect]
     Indication: DRUG EXPOSURE DURING PREGNANCY

REACTIONS (3)
  - FOETAL GROWTH RETARDATION [None]
  - HYPOGLYCAEMIA [None]
  - PREMATURE BABY [None]
